FAERS Safety Report 8391273-1 (Version None)
Quarter: 2012Q2

REPORT INFORMATION
  Report Type: 
  Country: None (occurrence: None)
  Receive Date: 20120529
  Receipt Date: 20110617
  Transmission Date: 20120825
  Serious: No
  Sender: FDA-Public Use
  Company Number: US-ABBOTT-11P-163-0733898-00

PATIENT
  Sex: Male
  Weight: 70.7 kg

DRUGS (4)
  1. SENSIPAR [Concomitant]
     Indication: RENAL FAILURE CHRONIC
  2. SODIUM BICARBONATE [Concomitant]
     Indication: RENAL FAILURE CHRONIC
  3. PHOSLO [Concomitant]
     Indication: RENAL FAILURE CHRONIC
  4. ZEMPLAR [Suspect]
     Indication: HYPERPARATHYROIDISM

REACTIONS (4)
  - DYSGEUSIA [None]
  - VISUAL IMPAIRMENT [None]
  - BONE PAIN [None]
  - ARTHRALGIA [None]
